FAERS Safety Report 24005870 (Version 1)
Quarter: 2024Q2

REPORT INFORMATION
  Report Type: Spontaneous
  Country: FR (occurrence: FR)
  Receive Date: 20240624
  Receipt Date: 20240624
  Transmission Date: 20240716
  Serious: Yes (Hospitalization)
  Sender: FDA-Public Use
  Company Number: None

PATIENT
  Age: 50 Year
  Sex: Female
  Weight: 39 kg

DRUGS (1)
  1. RITUXIMAB [Suspect]
     Active Substance: RITUXIMAB
     Indication: Urticarial vasculitis
     Dosage: FREQ:6 MO;
     Route: 042
     Dates: start: 20200304, end: 20230920

REACTIONS (3)
  - Cystitis interstitial [Recovering/Resolving]
  - Hypogammaglobulinaemia [Not Recovered/Not Resolved]
  - Escherichia pyelonephritis [Recovering/Resolving]

NARRATIVE: CASE EVENT DATE: 20240315
